FAERS Safety Report 24792731 (Version 1)
Quarter: 2024Q4

REPORT INFORMATION
  Report Type: Spontaneous
  Country: US (occurrence: US)
  Receive Date: 20241231
  Receipt Date: 20241231
  Transmission Date: 20250115
  Serious: No
  Sender: SANOFI AVENTIS
  Company Number: US-SA-2024SA383637

PATIENT
  Age: 25 Year
  Sex: Female

DRUGS (1)
  1. LOVENOX [Suspect]
     Active Substance: ENOXAPARIN SODIUM
     Indication: Venous thrombosis in pregnancy
     Dosage: 120 MG, QD
     Route: 058

REACTIONS (2)
  - Exposure during pregnancy [Unknown]
  - Off label use [Unknown]
